FAERS Safety Report 23508601 (Version 1)
Quarter: 2024Q1

REPORT INFORMATION
  Report Type: Spontaneous
  Country: US (occurrence: US)
  Receive Date: 20240209
  Receipt Date: 20240209
  Transmission Date: 20240410
  Serious: Yes (Hospitalization, Other)
  Sender: FDA-Public Use
  Company Number: US-PURDUE PHARMA-USA-2024-0307719

PATIENT
  Age: 6 Decade
  Sex: Female

DRUGS (28)
  1. OXYCODONE HYDROCHLORIDE [Suspect]
     Active Substance: OXYCODONE HYDROCHLORIDE
     Indication: Back pain
     Dosage: 15 MILLIGRAM, Q4H PRN
     Route: 048
  2. OXYCODONE HYDROCHLORIDE [Suspect]
     Active Substance: OXYCODONE HYDROCHLORIDE
     Indication: Neck pain
     Dosage: 15 MILLIGRAM, Q4H PRN
     Route: 048
  3. OXYCODONE HYDROCHLORIDE [Suspect]
     Active Substance: OXYCODONE HYDROCHLORIDE
     Indication: Axillary pain
  4. OXYCODONE HYDROCHLORIDE [Suspect]
     Active Substance: OXYCODONE HYDROCHLORIDE
     Indication: Back pain
     Dosage: 36 MILLIGRAM, Q8H
     Route: 048
  5. OXYCODONE HYDROCHLORIDE [Suspect]
     Active Substance: OXYCODONE HYDROCHLORIDE
     Indication: Neck pain
  6. OXYCODONE HYDROCHLORIDE [Suspect]
     Active Substance: OXYCODONE HYDROCHLORIDE
     Indication: Axillary pain
  7. MORPHINE SULFATE [Suspect]
     Active Substance: MORPHINE SULFATE
     Indication: Neck pain
     Dosage: 30 MILLIGRAM, Q12H
     Route: 048
  8. MORPHINE SULFATE [Suspect]
     Active Substance: MORPHINE SULFATE
     Indication: Back pain
     Dosage: 30 MILLIGRAM, Q8H (DOSE INCREASE, 30 MG EVERY EIGHT HOURS)
     Route: 048
  9. MORPHINE SULFATE [Suspect]
     Active Substance: MORPHINE SULFATE
     Indication: Axillary pain
     Dosage: 30 MILLIGRAM, Q8H
     Route: 048
  10. MORPHINE [Suspect]
     Active Substance: MORPHINE
     Indication: Neck pain
     Dosage: 7.5 MILLIGRAM, Q4H PRN
     Route: 065
  11. MORPHINE [Suspect]
     Active Substance: MORPHINE
     Indication: Back pain
  12. MORPHINE [Suspect]
     Active Substance: MORPHINE
     Indication: Axillary pain
  13. TRAMADOL [Suspect]
     Active Substance: TRAMADOL\TRAMADOL HYDROCHLORIDE
     Indication: Neck pain
     Dosage: 50 MILLIGRAM, Q8H PRN
     Route: 065
  14. TRAMADOL [Suspect]
     Active Substance: TRAMADOL\TRAMADOL HYDROCHLORIDE
     Indication: Back pain
  15. TRAMADOL [Suspect]
     Active Substance: TRAMADOL\TRAMADOL HYDROCHLORIDE
     Indication: Axillary pain
  16. FENTANYL [Suspect]
     Active Substance: FENTANYL\FENTANYL CITRATE
     Indication: Back pain
     Dosage: UNK
     Route: 062
  17. FENTANYL [Suspect]
     Active Substance: FENTANYL\FENTANYL CITRATE
     Indication: Neck pain
  18. FENTANYL [Suspect]
     Active Substance: FENTANYL\FENTANYL CITRATE
     Indication: Axillary pain
  19. DULOXETINE [Suspect]
     Active Substance: DULOXETINE
     Indication: Back pain
     Dosage: 60 MILLIGRAM, DAILY
     Route: 065
  20. DULOXETINE [Suspect]
     Active Substance: DULOXETINE
     Indication: Neck pain
  21. DULOXETINE [Suspect]
     Active Substance: DULOXETINE
     Indication: Axillary pain
  22. METHADONE [Suspect]
     Active Substance: METHADONE HYDROCHLORIDE
     Indication: Back pain
     Dosage: 10 MILLIGRAM, Q8H
     Route: 065
  23. METHADONE [Suspect]
     Active Substance: METHADONE HYDROCHLORIDE
     Indication: Neck pain
  24. METHADONE [Suspect]
     Active Substance: METHADONE HYDROCHLORIDE
     Indication: Axillary pain
  25. METHADONE [Suspect]
     Active Substance: METHADONE HYDROCHLORIDE
     Indication: Palliative care
  26. GABAPENTIN [Suspect]
     Active Substance: GABAPENTIN
     Indication: Neck pain
     Dosage: 300 MILLIGRAM, Q8H
     Route: 065
  27. GABAPENTIN [Suspect]
     Active Substance: GABAPENTIN
     Indication: Back pain
  28. GABAPENTIN [Suspect]
     Active Substance: GABAPENTIN
     Indication: Axillary pain

REACTIONS (3)
  - Neurotoxicity [Recovered/Resolved]
  - Pain [Recovering/Resolving]
  - Inadequate analgesia [Unknown]
